FAERS Safety Report 12204219 (Version 1)
Quarter: 2016Q1

REPORT INFORMATION
  Report Type: Spontaneous
  Country: FR (occurrence: FR)
  Receive Date: 20160323
  Receipt Date: 20160323
  Transmission Date: 20160526
  Serious: Yes (Other)
  Sender: FDA-Public Use
  Company Number: FR-ASTRAZENECA-2016SE29761

PATIENT
  Sex: Female

DRUGS (6)
  1. PEMETREXED [Concomitant]
     Active Substance: PEMETREXED
     Dates: start: 201002, end: 201008
  2. IRESSA [Suspect]
     Active Substance: GEFITINIB
     Indication: NON-SMALL CELL LUNG CANCER
     Route: 048
     Dates: start: 201008, end: 201207
  3. CISPLATIN. [Concomitant]
     Active Substance: CISPLATIN
     Dates: start: 201002, end: 201008
  4. TAXOL [Concomitant]
     Active Substance: PACLITAXEL
     Dates: start: 201208, end: 201212
  5. IRESSA [Suspect]
     Active Substance: GEFITINIB
     Indication: NON-SMALL CELL LUNG CANCER
     Route: 048
     Dates: start: 201402, end: 201603
  6. AVASTIN [Concomitant]
     Active Substance: BEVACIZUMAB
     Dates: start: 201208, end: 201212

REACTIONS (1)
  - Malignant neoplasm progression [Unknown]
